FAERS Safety Report 25353159 (Version 1)
Quarter: 2025Q2

REPORT INFORMATION
  Report Type: Report from Study
  Country: US (occurrence: US)
  Receive Date: 20250523
  Receipt Date: 20250523
  Transmission Date: 20250716
  Serious: Yes (Death, Other)
  Sender: PFIZER
  Company Number: US-PFIZER INC-202500081674

PATIENT
  Age: 75 Year
  Sex: Male

DRUGS (1)
  1. VYNDAMAX [Suspect]
     Active Substance: TAFAMIDIS
     Dosage: 61 MG, DAILY
     Route: 048
     Dates: start: 202409

REACTIONS (13)
  - Cardiac arrest [Fatal]
  - Dialysis [Not Recovered/Not Resolved]
  - Spinal fracture [Unknown]
  - Hypotension [Not Recovered/Not Resolved]
  - Decreased appetite [Unknown]
  - Ageusia [Unknown]
  - Weight decreased [Unknown]
  - Fall [Unknown]
  - Gait inability [Unknown]
  - Injury [Unknown]
  - Dyspnoea [Unknown]
  - Depressed mood [Unknown]
  - Visual impairment [Unknown]

NARRATIVE: CASE EVENT DATE: 20240101
